FAERS Safety Report 15622430 (Version 2)
Quarter: 2018Q4

REPORT INFORMATION
  Report Type: Spontaneous
  Country: US (occurrence: US)
  Receive Date: 20181115
  Receipt Date: 20181217
  Transmission Date: 20190205
  Serious: No
  Sender: FDA-Public Use
  Company Number: US-PFIZER INC-2018458076

PATIENT
  Age: 68 Year
  Sex: Female

DRUGS (1)
  1. SUTENT [Suspect]
     Active Substance: SUNITINIB MALATE
     Indication: GASTROINTESTINAL STROMAL TUMOUR
     Dosage: 50 MG, CYCLIC(3 WKS ON, 1 WK OFF)
     Dates: start: 20180919

REACTIONS (10)
  - Gait disturbance [Unknown]
  - Balance disorder [Unknown]
  - Abdominal discomfort [Recovered/Resolved]
  - Chills [Unknown]
  - Nausea [Recovered/Resolved]
  - Diarrhoea [Unknown]
  - Incontinence [Unknown]
  - Stomatitis [Recovered/Resolved]
  - Decreased appetite [Unknown]
  - Asthenia [Unknown]
